FAERS Safety Report 11218257 (Version 1)
Quarter: 2015Q2

REPORT INFORMATION
  Report Type: Spontaneous
  Country: US (occurrence: None)
  Receive Date: 20150624
  Receipt Date: 20150624
  Transmission Date: 20150821
  Serious: Yes (Other)
  Sender: FDA-Public Use
  Company Number: None

PATIENT
  Age: 58 Year
  Sex: Female

DRUGS (1)
  1. ENOXAPARIN 80MG [Suspect]
     Active Substance: ENOXAPARIN

REACTIONS (2)
  - Injection site induration [None]
  - Injection site bruising [None]

NARRATIVE: CASE EVENT DATE: 20150622
